FAERS Safety Report 4697347-0 (Version None)
Quarter: 2005Q2

REPORT INFORMATION
  Report Type: 
  Country: None (occurrence: None)
  Receive Date: 20050620
  Receipt Date: 20050602
  Transmission Date: 20051028
  Serious: Yes (Other)
  Sender: FDA-Public Use
  Company Number: DSA_26607_2005

PATIENT
  Age: 62 Year
  Sex: Male

DRUGS (8)
  1. DILTIAZEM HYDROCHLORIDE [Suspect]
     Indication: MYOCARDIAL ISCHAEMIA
     Dosage: 180 MG Q
  2. ISOSRBIDE DINITRATE [Suspect]
     Indication: MYOCARDIAL ISCHAEMIA
     Dosage: 120 MG Q DAY
  3. FRUSEMIDE [Concomitant]
     Indication: CARDIAC FAILURE CONGESTIVE
     Dosage: 80 MG Q DAY
  4. METFORMIN [Suspect]
     Indication: DIABETES MELLITUS
     Dosage: 2 G Q DAY
  5. AMIODARONE HYDROCHLORIDE [Suspect]
     Indication: CARDIAC DISORDER
     Dosage: 200 MG Q DAY
  6. PERHEXILINE MALEATE [Suspect]
     Indication: MYOCARDIAL ISCHAEMIA
     Dosage: 100 MG Q DAY
  7. SPIRONOLACTONE [Suspect]
     Indication: CARDIAC FAILURE
     Dosage: 50 MG Q DAY
  8. ASPIRIN [Suspect]
     Indication: MYOCARDIAL ISCHAEMIA
     Dosage: 100 MG Q DAY

REACTIONS (2)
  - HEPATIC CIRRHOSIS [None]
  - HEPATIC NECROSIS [None]
